FAERS Safety Report 19674668 (Version 2)
Quarter: 2021Q3

REPORT INFORMATION
  Report Type: Spontaneous
  Country: CA (occurrence: CA)
  Receive Date: 20210809
  Receipt Date: 20210816
  Transmission Date: 20211014
  Serious: Yes (Other)
  Sender: FDA-Public Use
  Company Number: CA-BAYER-2021-185337

PATIENT
  Sex: Female
  Weight: 120 kg

DRUGS (3)
  1. GADOVIST [Suspect]
     Active Substance: GADOBUTROL
     Indication: CREPITATIONS
  2. GADOVIST [Suspect]
     Active Substance: GADOBUTROL
     Indication: MAGNETIC RESONANCE IMAGING JOINT
     Dosage: 6 ML, ONCE
     Route: 042
     Dates: start: 20210324, end: 20210324
  3. GADOVIST [Suspect]
     Active Substance: GADOBUTROL
     Indication: MUSCULOSKELETAL CHEST PAIN

REACTIONS (12)
  - Contrast media toxicity [Not Recovered/Not Resolved]
  - Pharyngeal swelling [None]
  - Nausea [Not Recovered/Not Resolved]
  - Feeling abnormal [Not Recovered/Not Resolved]
  - Migraine [Not Recovered/Not Resolved]
  - Throat tightness [None]
  - Dizziness [Not Recovered/Not Resolved]
  - Cold sweat [Not Recovered/Not Resolved]
  - Rash pruritic [None]
  - Bone pain [Not Recovered/Not Resolved]
  - Arthralgia [Not Recovered/Not Resolved]
  - Headache [Not Recovered/Not Resolved]

NARRATIVE: CASE EVENT DATE: 202103
